FAERS Safety Report 5643347-3 (Version None)
Quarter: 2008Q1

REPORT INFORMATION
  Report Type: 
  Country: None (occurrence: None)
  Receive Date: 20080228
  Receipt Date: 20080225
  Transmission Date: 20080703
  Serious: Yes (Death)
  Sender: FDA-Public Use
  Company Number: DE-ASTRAZENECA-2008PK00403

PATIENT
  Age: 25960 Day
  Sex: Female

DRUGS (67)
  1. BELOC ZOK [Suspect]
     Indication: ACUTE MYOCARDIAL INFARCTION
     Route: 048
     Dates: start: 20041012, end: 20041031
  2. ALLOPURINOL [Suspect]
     Indication: HYPERURICAEMIA
     Route: 048
     Dates: start: 20041024, end: 20041102
  3. CARBIUM RETARD [Suspect]
     Indication: RESTLESSNESS
     Route: 048
     Dates: start: 20041101, end: 20041102
  4. CLEXANE [Suspect]
     Indication: THROMBOSIS PROPHYLAXIS
     Route: 058
     Dates: start: 20041011, end: 20041028
  5. TAVOR [Suspect]
     Indication: SLEEP DISORDER
     Route: 048
     Dates: start: 20041014, end: 20041014
  6. TAVOR [Suspect]
     Route: 048
     Dates: start: 20041030, end: 20041030
  7. RAMIPRIL [Suspect]
     Indication: HYPERTENSION
     Route: 048
     Dates: start: 20041007, end: 20041031
  8. DISALUNIL [Suspect]
     Indication: HYPERTENSION
     Route: 048
     Dates: start: 20041012, end: 20041031
  9. PANTOZOL [Suspect]
     Indication: PROPHYLAXIS AGAINST GASTROINTESTINAL ULCER
     Route: 048
     Dates: start: 20041007, end: 20041031
  10. TOREM [Suspect]
     Indication: RENAL FAILURE
     Route: 048
     Dates: start: 20041012, end: 20041031
  11. TOREM [Suspect]
     Route: 048
     Dates: start: 20041102, end: 20041105
  12. IRENAT [Suspect]
     Indication: HYPERTHYROIDISM
     Dosage: 60 DROPS PER DAY
     Route: 048
     Dates: start: 20041006, end: 20041105
  13. THIAMAZOL [Suspect]
     Indication: HYPERTHYROIDISM
     Route: 048
     Dates: start: 20041006, end: 20041105
  14. ISCOVER [Suspect]
     Indication: THROMBOSIS PROPHYLAXIS
     Route: 048
     Dates: start: 20041005, end: 20041107
  15. DIGITOXIN INJ [Suspect]
     Indication: CARDIAC FAILURE
     Route: 048
     Dates: start: 20041014, end: 20041027
  16. DIGITOXIN INJ [Suspect]
     Route: 048
     Dates: start: 20041103
  17. MCP [Suspect]
     Indication: NAUSEA
     Route: 048
     Dates: start: 20041023, end: 20041023
  18. MCP [Suspect]
     Route: 048
     Dates: start: 20041025, end: 20041028
  19. EUNERPAN [Suspect]
     Indication: SLEEP DISORDER
     Route: 048
     Dates: start: 20041030, end: 20041031
  20. EUNERPAN [Suspect]
     Route: 048
     Dates: start: 20041102, end: 20041107
  21. LOPERAMID [Suspect]
     Indication: DIARRHOEA
     Route: 048
     Dates: start: 20041031, end: 20041031
  22. TAZOBACTAM [Concomitant]
     Indication: PNEUMONIA
     Route: 042
     Dates: start: 20041007, end: 20041015
  23. PERFALGAN [Concomitant]
     Indication: PYREXIA
     Route: 042
     Dates: start: 20041014, end: 20041014
  24. PERFALGAN [Concomitant]
     Route: 042
     Dates: start: 20041021, end: 20041021
  25. RED BLOOD CELLS [Concomitant]
     Indication: HAEMOGLOBIN DECREASED
     Route: 042
     Dates: start: 20041004, end: 20041031
  26. SORTIS [Concomitant]
     Indication: HYPERCHOLESTEROLAEMIA
     Route: 048
     Dates: start: 20040729, end: 20041102
  27. ASPIRIN [Concomitant]
     Indication: THROMBOSIS PROPHYLAXIS
     Route: 048
     Dates: start: 20040729, end: 20041107
  28. LANTUS [Concomitant]
     Indication: DIABETES MELLITUS
     Route: 058
     Dates: start: 20040729, end: 20041110
  29. HUMALOG [Concomitant]
     Indication: DIABETES MELLITUS
     Route: 058
     Dates: start: 20040729, end: 20041110
  30. KALINOR BRAUSETABLETTEN [Concomitant]
     Indication: HYPOKALAEMIA
     Route: 048
     Dates: start: 20041015, end: 20041020
  31. KALINOR BRAUSETABLETTEN [Concomitant]
     Route: 048
     Dates: start: 20041023, end: 20041025
  32. KALINOR BRAUSETABLETTEN [Concomitant]
     Route: 048
     Dates: start: 20041102, end: 20041104
  33. LENDORMIN [Concomitant]
     Indication: SLEEP DISORDER
     Route: 048
     Dates: start: 20041015, end: 20041024
  34. LENDORMIN [Concomitant]
     Route: 048
     Dates: start: 20041103, end: 20041103
  35. LENDORMIN [Concomitant]
     Route: 048
     Dates: start: 20041110, end: 20041110
  36. NOVALGIN [Concomitant]
     Indication: PAIN
     Route: 048
     Dates: start: 20041017, end: 20041017
  37. ROHYPNOL [Concomitant]
     Indication: SEDATION
     Route: 048
     Dates: start: 20041018, end: 20041018
  38. KLACID [Concomitant]
     Indication: PNEUMONIA
     Route: 048
     Dates: start: 20041018, end: 20041024
  39. MCP [Concomitant]
     Route: 042
     Dates: start: 20081024, end: 20081025
  40. SODIUM CHLORIDE [Concomitant]
     Indication: FLUID REPLACEMENT
     Route: 042
     Dates: start: 20041024, end: 20041027
  41. KALINOR RETARD [Concomitant]
     Indication: HYPOKALAEMIA
     Route: 048
     Dates: start: 20041025, end: 20041027
  42. KALINOR RETARD [Concomitant]
     Route: 048
     Dates: start: 20041101, end: 20041101
  43. POTASSIUM CHLORIDE [Concomitant]
     Indication: HYPOKALAEMIA
     Route: 042
     Dates: start: 20041027, end: 20041027
  44. POTASSIUM CHLORIDE [Concomitant]
     Route: 042
     Dates: start: 20041102, end: 20041104
  45. FUROSEMIDE [Concomitant]
     Indication: POLYURIA
     Route: 048
     Dates: start: 20041101, end: 20041101
  46. RAMIPRIL COMP HEXAL [Concomitant]
     Indication: HYPERTENSION
     Route: 048
     Dates: start: 20041101, end: 20041102
  47. METOPROLOL RETARD [Concomitant]
     Indication: HYPERTENSION
     Route: 048
     Dates: start: 20041101, end: 20041107
  48. GLUCOSE [Concomitant]
     Indication: HYPOGLYCAEMIA
     Route: 042
     Dates: start: 20041102, end: 20041102
  49. GLUCOSE [Concomitant]
     Route: 042
     Dates: start: 20041108, end: 20041108
  50. FURESIS [Concomitant]
     Indication: POLYURIA
     Route: 042
     Dates: start: 20041102
  51. JONOSTERIL [Concomitant]
     Indication: FLUID REPLACEMENT
     Route: 042
     Dates: start: 20041102
  52. DIPIPERON [Concomitant]
     Indication: CONFUSIONAL STATE
     Route: 048
     Dates: start: 20041103, end: 20041104
  53. FERRO SANOL DUODENAL [Concomitant]
     Indication: ELECTROLYTE SUBSTITUTION THERAPY
     Route: 048
     Dates: start: 20041103, end: 20041107
  54. HALOPERIDOL [Concomitant]
     Indication: CONFUSIONAL STATE
     Route: 048
     Dates: start: 20041104, end: 20041105
  55. FENISTIL [Concomitant]
     Indication: PRURITUS
     Route: 048
     Dates: start: 20041104, end: 20041107
  56. FENISTIL [Concomitant]
     Route: 042
     Dates: start: 20041105, end: 20041105
  57. PROTHAZIN [Concomitant]
     Indication: RESTLESSNESS
     Route: 042
     Dates: start: 20041105, end: 20041108
  58. PREDNISOLUT [Concomitant]
     Indication: SWOLLEN TONGUE
     Route: 042
     Dates: start: 20041105, end: 20041110
  59. UNACID [Concomitant]
     Indication: PAROTITIS
     Route: 042
     Dates: start: 20041106, end: 20041106
  60. DIGITOXIN INJ [Concomitant]
     Route: 042
     Dates: start: 20041106, end: 20041108
  61. MORPHINE [Concomitant]
     Indication: PAIN
     Route: 042
     Dates: start: 20041106, end: 20041109
  62. DIFLUCAN [Concomitant]
     Indication: CANDIDIASIS
     Route: 042
     Dates: start: 20041106, end: 20041110
  63. AMPHO MORONAL [Concomitant]
     Indication: CANDIDIASIS
     Dates: start: 20041006
  64. TAVANIC [Concomitant]
     Indication: PAROTITIS
     Route: 042
     Dates: start: 20041107, end: 20041110
  65. POLYSPECTRAN [Concomitant]
     Indication: OCULAR HYPERAEMIA
     Route: 047
     Dates: start: 20041108
  66. ZYRTEC [Concomitant]
     Indication: PRURITUS
     Route: 048
     Dates: start: 20041110, end: 20041110
  67. DERMATOP [Concomitant]
     Indication: SKIN DISORDER
     Route: 061
     Dates: start: 20041110, end: 20041110

REACTIONS (1)
  - STEVENS-JOHNSON SYNDROME [None]
